FAERS Safety Report 24293912 (Version 1)
Quarter: 2024Q3

REPORT INFORMATION
  Report Type: Spontaneous
  Country: US (occurrence: None)
  Receive Date: 20240906
  Receipt Date: 20240906
  Transmission Date: 20241017
  Serious: No
  Sender: DOMPE FARMACEUTICI
  Company Number: US-FARMAPROD-202308-202403-0797

PATIENT
  Sex: Female
  Weight: 82.74 kg

DRUGS (12)
  1. OXERVATE [Suspect]
     Active Substance: CENEGERMIN-BKBJ
     Indication: Neurotrophic keratopathy
     Route: 047
     Dates: start: 20240214
  2. BUMETANIDE [Concomitant]
     Active Substance: BUMETANIDE
  3. REFRESH CLASSIC [Concomitant]
     Active Substance: POLYVINYL ALCOHOL\POVIDONE
  4. ASPIRIN [Concomitant]
     Active Substance: ASPIRIN
  5. ENTRESTO [Concomitant]
     Active Substance: SACUBITRIL\VALSARTAN
     Dosage: 24 MG-26MG
  6. SIMVASTATIN [Concomitant]
     Active Substance: SIMVASTATIN
  7. ELIQUIS [Concomitant]
     Active Substance: APIXABAN
  8. METOPROLOL SUCCINATE [Concomitant]
     Active Substance: METOPROLOL SUCCINATE
     Dosage: EXTENDED RELEASE FOR 24 HOURS
  9. ALPRAZOLAM [Concomitant]
     Active Substance: ALPRAZOLAM
  10. MAGNESIUM [Concomitant]
     Active Substance: MAGNESIUM
  11. VITAMIN C [Concomitant]
     Active Substance: ASCORBIC ACID
  12. ACITRETIN [Concomitant]
     Active Substance: ACITRETIN

REACTIONS (1)
  - Periorbital pain [Recovering/Resolving]
